FAERS Safety Report 6429925-2 (Version None)
Quarter: 2009Q4

REPORT INFORMATION
  Report Type: 
  Country: None (occurrence: None)
  Receive Date: 20091104
  Receipt Date: 20091104
  Transmission Date: 20100525
  Serious: No
  Sender: FDA-Public Use
  Company Number: None

PATIENT
  Age: 18 Year

DRUGS (1)
  1. FLUOXETINE [Suspect]
     Indication: DEPRESSION
     Dosage: 20 MG EVERY DAY PO
     Route: 048
     Dates: start: 20081123, end: 20081124

REACTIONS (4)
  - BRADYCARDIA [None]
  - DEPRESSED MOOD [None]
  - INCORRECT DOSE ADMINISTERED [None]
  - STRESS [None]
